FAERS Safety Report 16141790 (Version 1)
Quarter: 2019Q2

REPORT INFORMATION
  Report Type: Spontaneous
  Country: US (occurrence: US)
  Receive Date: 20190401
  Receipt Date: 20190401
  Transmission Date: 20190711
  Serious: Yes (Hospitalization)
  Sender: FDA-Public Use
  Company Number: US-WHANIN PHARM. CO., LTD.-2019M1029229

PATIENT
  Age: 22 Year
  Sex: Male

DRUGS (4)
  1. BENZTROPINE                        /00012901/ [Suspect]
     Active Substance: BENZTROPINE
     Indication: TACHYCARDIA
     Dosage: 0.5 MILLIGRAM
     Route: 048
  2. ZOLPIDEM [Concomitant]
     Active Substance: ZOLPIDEM\ZOLPIDEM TARTRATE
     Dosage: RECEIVED ONLY FOR TWO DAYS
     Route: 065
  3. BENZTROPINE                        /00012901/ [Suspect]
     Active Substance: BENZTROPINE
     Indication: MUSCLE RIGIDITY
     Dosage: 0.5 MILLIGRAM
     Route: 042
  4. CLOZAPINE. [Suspect]
     Active Substance: CLOZAPINE
     Indication: SCHIZOPHRENIA
     Route: 065

REACTIONS (5)
  - Malignant catatonia [Recovering/Resolving]
  - Urinary retention [Recovering/Resolving]
  - Urinary tract infection [Unknown]
  - Withdrawal syndrome [Recovering/Resolving]
  - Fall [Unknown]
